FAERS Safety Report 25554071 (Version 1)
Quarter: 2025Q3

REPORT INFORMATION
  Report Type: Report from Study
  Country: US (occurrence: US)
  Receive Date: 20250715
  Receipt Date: 20250715
  Transmission Date: 20251020
  Serious: Yes (Other)
  Sender: RANBAXY
  Company Number: US-SUN PHARMACEUTICAL INDUSTRIES LTD-2025R1-516521

PATIENT
  Age: 27 Year
  Sex: Female

DRUGS (1)
  1. PRAMIPEXOLE [Suspect]
     Active Substance: PRAMIPEXOLE
     Indication: Parkinson^s disease
     Dosage: 0.5-1 MG, TID
     Route: 065

REACTIONS (3)
  - Meconium in amniotic fluid [Unknown]
  - Exposure during pregnancy [Unknown]
  - Live birth [Unknown]
